FAERS Safety Report 18968058 (Version 2)
Quarter: 2021Q1

REPORT INFORMATION
  Report Type: Spontaneous
  Country: CA (occurrence: CA)
  Receive Date: 20210304
  Receipt Date: 20210322
  Transmission Date: 20210420
  Serious: Yes (Other)
  Sender: FDA-Public Use
  Company Number: CA-COVIS PHARMA GMBH-2021COV00079

PATIENT
  Age: 61 Year
  Sex: Female
  Weight: 74.83 kg

DRUGS (17)
  1. IV MAGNESIUM [Concomitant]
     Route: 042
  2. PROBIOTIC [Concomitant]
     Active Substance: PROBIOTICS NOS
  3. BIOFUNGAS DROPS [Concomitant]
  4. BUPROPRION HCL [Concomitant]
     Active Substance: BUPROPION HYDROCHLORIDE
     Dosage: 150 MG, 1X/DAY
  5. PULMICORT TURBUHALER [Suspect]
     Active Substance: BUDESONIDE
     Indication: BRONCHITIS
     Dosage: 1 ?G, 2X/DAY
     Dates: start: 202009, end: 2020
  6. CANDESARTAN CILEXETIL. [Concomitant]
     Active Substance: CANDESARTAN CILEXETIL
  7. PINAVERIUM BROMIDE [Concomitant]
     Active Substance: PINAVERIUM BROMIDE
  8. PULMICORT TURBUHALER [Suspect]
     Active Substance: BUDESONIDE
     Dosage: ^TOOK A LITTLE TINY PUFF JUST TO SEE^
     Dates: start: 2020, end: 2020
  9. MAGNESIUM CITRATE. [Concomitant]
     Active Substance: MAGNESIUM CITRATE
  10. CALCIUM UNDECYLENATE. [Concomitant]
     Active Substance: CALCIUM UNDECYLENATE
  11. OMEGA [Concomitant]
  12. ALVESCO [Suspect]
     Active Substance: CICLESONIDE
     Indication: BRONCHITIS
     Dosage: 200 ?G (2 PUFFS), 1X/DAY
     Dates: start: 20201024
  13. MENOPAUSE FORMULA [Concomitant]
     Active Substance: HOMEOPATHICS
  14. NEURIVA [Concomitant]
  15. RABEPRAZOLE [Concomitant]
     Active Substance: RABEPRAZOLE
  16. IV LIDOCAINE [Concomitant]
     Route: 042
  17. ZOPICLONE [Concomitant]
     Active Substance: ZOPICLONE

REACTIONS (12)
  - Musculoskeletal stiffness [Unknown]
  - Myalgia [Recovering/Resolving]
  - Muscle spasms [Unknown]
  - Headache [Unknown]
  - Low density lipoprotein increased [Unknown]
  - Arthralgia [Recovering/Resolving]
  - Lip discolouration [Unknown]
  - Off label use [Recovered/Resolved]
  - Vomiting [Unknown]
  - Abdominal pain upper [Unknown]
  - Dyspnoea [Unknown]
  - Blood cholesterol increased [Unknown]

NARRATIVE: CASE EVENT DATE: 202009
